FAERS Safety Report 6566578-7 (Version None)
Quarter: 2010Q1

REPORT INFORMATION
  Report Type: 
  Country: None (occurrence: None)
  Receive Date: 20100127
  Receipt Date: 20100115
  Transmission Date: 20100710
  Serious: Yes (Hospitalization)
  Sender: FDA-Public Use
  Company Number: FABR-1001145

PATIENT
  Age: 42 Year
  Sex: Male
  Weight: 102 kg

DRUGS (6)
  1. FABRAZYME [Suspect]
     Indication: FABRY'S DISEASE
     Dosage: 35 MG, Q2W, INTRAVENOUS; 70 MG, Q2W, INTRAVENOUS; 105 MG, Q2W, INTRAVENOUS
     Route: 042
     Dates: start: 20030110
  2. FABRAZYME [Suspect]
     Indication: FABRY'S DISEASE
     Dosage: 35 MG, Q2W, INTRAVENOUS; 70 MG, Q2W, INTRAVENOUS; 105 MG, Q2W, INTRAVENOUS
     Route: 042
     Dates: start: 20091010
  3. FABRAZYME [Suspect]
     Indication: FABRY'S DISEASE
     Dosage: 35 MG, Q2W, INTRAVENOUS; 70 MG, Q2W, INTRAVENOUS; 105 MG, Q2W, INTRAVENOUS
     Route: 042
     Dates: start: 20091107
  4. CARDIOASPIRINE [Concomitant]
  5. SOTALOL HCL [Concomitant]
  6. TEGRETOL [Concomitant]

REACTIONS (5)
  - CHEST PAIN [None]
  - DYSPNOEA [None]
  - ERYSIPELAS [None]
  - PYREXIA [None]
  - UPPER EXTREMITY MASS [None]
